FAERS Safety Report 8256844-1 (Version None)
Quarter: 2012Q2

REPORT INFORMATION
  Report Type: 
  Country: None (occurrence: None)
  Receive Date: 20120403
  Receipt Date: 20120327
  Transmission Date: 20120825
  Serious: Yes (Other)
  Sender: FDA-Public Use
  Company Number: JP-PFIZER INC-2012044101

PATIENT
  Age: 56 Year
  Sex: Male

DRUGS (14)
  1. RHEUMATREX [Suspect]
     Dosage: 6 MG/DAY
     Dates: start: 20111227
  2. LOXONIN [Concomitant]
  3. LANSOPRAZOLE [Concomitant]
  4. RHEUMATREX [Suspect]
     Dosage: 6 MG/DAY
     Dates: start: 19990807
  5. RHEUMATREX [Suspect]
     Dosage: 8 MG/DAY
     Dates: start: 20020805
  6. EPLERENONE [Suspect]
     Indication: CARDIAC HYPERTROPHY
     Dosage: UNK
  7. PREDNISOLONE [Concomitant]
  8. LYRICA [Suspect]
     Dosage: 300 MG DAILY
     Route: 048
     Dates: start: 20111220
  9. PREDNISOLONE [Suspect]
     Dosage: UNK
  10. LYRICA [Suspect]
     Indication: TRIGEMINAL NEURALGIA
     Dosage: 150 MG DAILY
     Route: 048
     Dates: start: 20111120, end: 20111220
  11. DIAZEPAM [Concomitant]
  12. TRIAZOLAM [Concomitant]
     Dosage: UNK
  13. ASPIRIN [Concomitant]
     Dosage: UNK
  14. METHOTREXATE [Concomitant]
     Dosage: UNK

REACTIONS (3)
  - CARDIOMEGALY [None]
  - CARDIAC HYPERTROPHY [None]
  - ANAEMIA MACROCYTIC [None]
